FAERS Safety Report 23926316 (Version 2)
Quarter: 2024Q3

REPORT INFORMATION
  Report Type: Spontaneous
  Country: CN (occurrence: CN)
  Receive Date: 20240531
  Receipt Date: 20240823
  Transmission Date: 20241016
  Serious: Yes (Hospitalization)
  Sender: ELI LILLY AND CO
  Company Number: CN-ELI_LILLY_AND_COMPANY-CN202405014747

PATIENT
  Age: 65 Year
  Sex: Female

DRUGS (1)
  1. DULAGLUTIDE [Suspect]
     Active Substance: DULAGLUTIDE
     Indication: Type 2 diabetes mellitus
     Dosage: UNK, UNKNOWN
     Route: 065
     Dates: start: 20210501

REACTIONS (22)
  - Carbohydrate antigen 19-9 increased [Recovered/Resolved]
  - Carbohydrate antigen 242 increased [Recovered/Resolved]
  - Carbohydrate antigen 125 increased [Unknown]
  - Hypertension [Unknown]
  - Blood glucose increased [Unknown]
  - Glycosylated haemoglobin increased [Unknown]
  - Hepatic mass [Unknown]
  - Hepatic cyst [Unknown]
  - Gallbladder enlargement [Unknown]
  - Biliary dilatation [Unknown]
  - Hepatic steatosis [Unknown]
  - Renal cyst [Unknown]
  - Uterine leiomyoma [Unknown]
  - Thyroid mass [Unknown]
  - Platelet count increased [Unknown]
  - Blood creatinine decreased [Unknown]
  - Blood glucose increased [Unknown]
  - Gastrointestinal tract adenoma [Unknown]
  - Chronic gastritis [Unknown]
  - Large intestine polyp [Unknown]
  - Pancreatic cyst [Unknown]
  - Carotid arteriosclerosis [Unknown]

NARRATIVE: CASE EVENT DATE: 20220926
